FAERS Safety Report 23749932 (Version 1)
Quarter: 2024Q2

REPORT INFORMATION
  Report Type: Spontaneous
  Country: IT (occurrence: IT)
  Receive Date: 20240417
  Receipt Date: 20240417
  Transmission Date: 20240716
  Serious: Yes (Other)
  Sender: FDA-Public Use
  Company Number: IT-CHEPLA-2024004565

PATIENT
  Age: 72 Year
  Sex: Female

DRUGS (2)
  1. CAPECITABINE [Suspect]
     Active Substance: CAPECITABINE
     Indication: Breast cancer metastatic
     Dosage: WITH A GRADUAL INCREASE IN DOSE
     Dates: start: 202110
  2. CAPECITABINE [Suspect]
     Active Substance: CAPECITABINE
     Indication: HER2 negative breast cancer
     Dosage: WITH A GRADUAL INCREASE IN DOSE
     Dates: start: 202110

REACTIONS (1)
  - IVth nerve paralysis [Recovering/Resolving]
